FAERS Safety Report 6184368-4 (Version None)
Quarter: 2009Q2

REPORT INFORMATION
  Report Type: 
  Country: None (occurrence: None)
  Receive Date: 20090508
  Receipt Date: 20090501
  Transmission Date: 20091009
  Serious: Yes (Other)
  Sender: FDA-Public Use
  Company Number: A0781675A

PATIENT
  Age: 63 Year
  Sex: Male

DRUGS (5)
  1. FLOVENT [Suspect]
     Indication: ASTHMA
     Dosage: 2PUFF TWICE PER DAY
     Route: 055
     Dates: start: 20071001, end: 20071001
  2. ADVAIR HFA [Suspect]
     Indication: ASTHMA
     Dosage: 2PUFF UNKNOWN
     Route: 055
  3. ADVAIR HFA [Suspect]
     Dosage: 2PUFF PER DAY
     Route: 055
     Dates: start: 20090101
  4. ALBUTEROL [Concomitant]
  5. SINGULAIR [Concomitant]

REACTIONS (8)
  - APHONIA [None]
  - ASTHMA [None]
  - DRUG INEFFECTIVE [None]
  - DYSPHONIA [None]
  - EXPIRED DRUG ADMINISTERED [None]
  - IMPAIRED WORK ABILITY [None]
  - OROPHARYNGEAL PAIN [None]
  - VOCAL CORD DISORDER [None]
